FAERS Safety Report 6276125-5 (Version None)
Quarter: 2009Q3

REPORT INFORMATION
  Report Type: 
  Country: None (occurrence: None)
  Receive Date: 20090717
  Receipt Date: 20090717
  Transmission Date: 20100115
  Serious: Yes (Hospitalization, Disabling)
  Sender: FDA-Public Use
  Company Number: None

PATIENT
  Sex: Male
  Weight: 86.1834 kg

DRUGS (5)
  1. DEPAKOTE [Suspect]
     Dosage: AM PM
     Dates: start: 20070101
  2. DEPAKOTE [Suspect]
     Dosage: AM PM
     Dates: start: 20090101
  3. RESPIRADALL [Concomitant]
  4. ABILIFY [Concomitant]
  5. TESTERZONE [Concomitant]

REACTIONS (2)
  - LIBIDO DECREASED [None]
  - MALE ORGASMIC DISORDER [None]
